FAERS Safety Report 19756618 (Version 11)
Quarter: 2022Q3

REPORT INFORMATION
  Report Type: Report from Study
  Country: US (occurrence: US)
  Receive Date: 20210828
  Receipt Date: 20220727
  Transmission Date: 20221026
  Serious: No
  Sender: FDA-Public Use
  Company Number: NVSC2021US194826

PATIENT
  Sex: Female

DRUGS (5)
  1. ENTRESTO [Suspect]
     Active Substance: SACUBITRIL\VALSARTAN
     Indication: Cardiac failure
     Dosage: 1 DF, BID(24/26MG)
     Route: 048
     Dates: start: 202107
  2. ENTRESTO [Suspect]
     Active Substance: SACUBITRIL\VALSARTAN
     Dosage: 1 DOSAGE FORM, OTHER(TWO TABLETS IN THE MORNING AND THREE TABLETS IN THE EVENING)
     Route: 048
     Dates: start: 202107
  3. ENTRESTO [Suspect]
     Active Substance: SACUBITRIL\VALSARTAN
     Dosage: UNK, BID, (97/103MG)
     Route: 048
     Dates: start: 202107
  4. SPIRONOLACTONE [Suspect]
     Active Substance: SPIRONOLACTONE
     Indication: Product used for unknown indication
     Dosage: UNK
     Route: 065
  5. METOPROLOL [Suspect]
     Active Substance: METOPROLOL
     Indication: Product used for unknown indication
     Dosage: UNK
     Route: 048

REACTIONS (14)
  - Arthralgia [Unknown]
  - Neck pain [Unknown]
  - Fall [Unknown]
  - Joint swelling [Unknown]
  - Joint injury [Unknown]
  - Fatigue [Unknown]
  - Hypotension [Recovering/Resolving]
  - Dizziness [Unknown]
  - Cough [Recovering/Resolving]
  - Nasopharyngitis [Unknown]
  - Cough [Recovering/Resolving]
  - Wrong technique in product usage process [Not Recovered/Not Resolved]
  - Wrong product administered [Unknown]
  - Product administration error [Unknown]
